FAERS Safety Report 19080828 (Version 1)
Quarter: 2021Q1

REPORT INFORMATION
  Report Type: Spontaneous
  Country: FR (occurrence: FR)
  Receive Date: 20210331
  Receipt Date: 20210331
  Transmission Date: 20210420
  Serious: Yes (Hospitalization, Other)
  Sender: FDA-Public Use
  Company Number: NVSC2021FR066608

PATIENT
  Age: 39 Year
  Sex: Male

DRUGS (4)
  1. NAPROXEN. [Suspect]
     Active Substance: NAPROXEN
     Indication: BACK PAIN
  2. IZALGI [Suspect]
     Active Substance: ACETAMINOPHEN\OPIUM
     Indication: BACK PAIN
     Dosage: UNK
     Route: 065
     Dates: start: 20201031
  3. NAPROXEN. [Suspect]
     Active Substance: NAPROXEN
     Indication: SCIATICA
     Dosage: UNK
     Route: 065
     Dates: start: 20201031
  4. IZALGI [Suspect]
     Active Substance: ACETAMINOPHEN\OPIUM
     Indication: SCIATICA

REACTIONS (3)
  - Hepatocellular injury [Recovering/Resolving]
  - Sphincter of Oddi dysfunction [Recovering/Resolving]
  - Abdominal pain [Recovering/Resolving]

NARRATIVE: CASE EVENT DATE: 202011
